FAERS Safety Report 9633244 (Version 1)
Quarter: 2013Q4

REPORT INFORMATION
  Report Type: Spontaneous
  Country: US (occurrence: None)
  Receive Date: 20131018
  Receipt Date: 20131018
  Transmission Date: 20140711
  Serious: Yes (Other)
  Sender: FDA-Public Use
  Company Number: None

PATIENT
  Age: 31 Year
  Sex: Female
  Weight: 61.24 kg

DRUGS (1)
  1. REMICADE [Suspect]
     Indication: CROHN^S DISEASE
     Dosage: INTO A VEIN

REACTIONS (6)
  - Chest discomfort [None]
  - Dyspnoea [None]
  - Cough [None]
  - Blood pressure increased [None]
  - Flushing [None]
  - Infusion related reaction [None]
